FAERS Safety Report 12553320 (Version 1)
Quarter: 2016Q3

REPORT INFORMATION
  Report Type: Spontaneous
  Country: US (occurrence: US)
  Receive Date: 20160713
  Receipt Date: 20160713
  Transmission Date: 20161109
  Serious: No
  Sender: FDA-Public Use
  Company Number: US-ASTRAZENECA-2016SE72831

PATIENT
  Age: 57 Year
  Sex: Female

DRUGS (2)
  1. RESCUE INHALER [Concomitant]
     Indication: ASTHMA
     Route: 055
  2. SYMBICORT [Suspect]
     Active Substance: BUDESONIDE\FORMOTEROL FUMARATE DIHYDRATE
     Indication: ASTHMA
     Dosage: 160/4.5 MCG ONE PUFF TWICE PER DAY.
     Route: 055
     Dates: start: 201606

REACTIONS (4)
  - Drug ineffective [Unknown]
  - Off label use [Unknown]
  - Reaction to preservatives [Unknown]
  - Chest discomfort [Unknown]
